FAERS Safety Report 4997296-4 (Version None)
Quarter: 2006Q1

REPORT INFORMATION
  Report Type: 
  Country: None (occurrence: None)
  Receive Date: 20060315
  Receipt Date: 20051118
  Transmission Date: 20060701
  Serious: Yes (Other)
  Sender: FDA-Public Use
  Company Number: 426340

PATIENT
  Age: 60 Year
  Sex: Female
  Weight: 43.5 kg

DRUGS (3)
  1. BONIVA [Suspect]
     Indication: OSTEOPENIA
     Dosage: 150 MG 1 PER MONTH ORAL
     Route: 048
     Dates: start: 20050715, end: 20051215
  2. FOSAMAX [Suspect]
     Indication: OSTEOPENIA
     Dosage: ORAL
     Route: 048
  3. ACTONEL [Suspect]
     Indication: OSTEOPENIA
     Dosage: ORAL

REACTIONS (6)
  - ABDOMINAL DISTENSION [None]
  - BONE PAIN [None]
  - DYSPEPSIA [None]
  - MYALGIA [None]
  - PAIN IN JAW [None]
  - WEIGHT INCREASED [None]
